FAERS Safety Report 19026848 (Version 2)
Quarter: 2021Q1

REPORT INFORMATION
  Report Type: Spontaneous
  Country: US (occurrence: US)
  Receive Date: 20210318
  Receipt Date: 20210319
  Transmission Date: 20210420
  Serious: No
  Sender: FDA-Public Use
  Company Number: US-MYLANLABS-2021M1014025

PATIENT
  Sex: Male
  Weight: 132 kg

DRUGS (2)
  1. SEMGLEE [Suspect]
     Active Substance: INSULIN GLARGINE
     Indication: TYPE 2 DIABETES MELLITUS
     Dosage: 100 INTERNATIONAL UNIT, QD (100 UNITS A DAY)
     Route: 058
  2. ADMELOG [Concomitant]
     Active Substance: INSULIN LISPRO
     Indication: TYPE 2 DIABETES MELLITUS
     Dosage: 100 UNIT

REACTIONS (2)
  - Device breakage [Not Recovered/Not Resolved]
  - Product dose omission issue [Not Recovered/Not Resolved]
